FAERS Safety Report 19472389 (Version 1)
Quarter: 2021Q2

REPORT INFORMATION
  Report Type: Spontaneous
  Country: US (occurrence: US)
  Receive Date: 20210629
  Receipt Date: 20210629
  Transmission Date: 20210717
  Serious: Yes (Other)
  Sender: FDA-Public Use
  Company Number: US-AMERICAN REGENT INC-2021001631

PATIENT
  Age: 70 Year
  Sex: Male

DRUGS (1)
  1. EPINEPHRINE INJECTION, USP (0517?1071?01) [Suspect]
     Active Substance: EPINEPHRINE
     Indication: PULSELESS ELECTRICAL ACTIVITY
     Dosage: UNK, THREE ROUNDS
     Route: 065

REACTIONS (4)
  - Arteriospasm coronary [Recovered/Resolved]
  - Product use in unapproved indication [None]
  - Condition aggravated [Recovered/Resolved]
  - Drug interaction [Recovered/Resolved]
